FAERS Safety Report 8598230-0 (Version None)
Quarter: 2012Q3

REPORT INFORMATION
  Report Type: 
  Country: None (occurrence: None)
  Receive Date: 20120802
  Receipt Date: 20120724
  Transmission Date: 20120928
  Serious: Yes (Other)
  Sender: FDA-Public Use
  Company Number: 2011001752

PATIENT
  Age: 83 Year
  Sex: Male

DRUGS (7)
  1. CEPHALEXIN [Concomitant]
  2. OCUVITE ADULT 50+ /06822201/ (ASCORBIC ACID, CUPRIC OXIDE, OMEGA-3 FAT [Concomitant]
  3. VERAPAMIL (VERAPAMIL) CAPSULE [Concomitant]
  4. PRAVASTATIN (PRAVASTATIN) TABLET [Concomitant]
  5. LUMIGAN [Concomitant]
  6. TARCEVA [Suspect]
     Indication: SMALL CELL LUNG CANCER STAGE UNSPECIFIED
     Dosage: 150 MG, UID/QD, ORAL
     Route: 048
     Dates: start: 20110323
  7. STOOL SOFTENER (DOCUSATE SODIUM) CAPSULE [Concomitant]

REACTIONS (13)
  - SKIN INFECTION [None]
  - RASH MACULO-PAPULAR [None]
  - SKIN EXFOLIATION [None]
  - WEIGHT DECREASED [None]
  - HYPOHIDROSIS [None]
  - ERYTHEMA [None]
  - DECREASED APPETITE [None]
  - RASH PRURITIC [None]
  - TRANSFUSION [None]
  - TENDERNESS [None]
  - CHILLS [None]
  - ALOPECIA [None]
  - DRY SKIN [None]
